FAERS Safety Report 20737271 (Version 2)
Quarter: 2022Q2

REPORT INFORMATION
  Report Type: Spontaneous
  Country: US (occurrence: US)
  Receive Date: 20220421
  Receipt Date: 20220509
  Transmission Date: 20220721
  Serious: Yes (Hospitalization)
  Sender: FDA-Public Use
  Company Number: US-BIOGEN-2022BI01115811

PATIENT
  Age: 41 Year
  Sex: Male

DRUGS (7)
  1. TYSABRI [Suspect]
     Active Substance: NATALIZUMAB
     Indication: Multiple sclerosis
     Route: 065
     Dates: start: 20160718, end: 20211216
  2. TYSABRI [Suspect]
     Active Substance: NATALIZUMAB
     Route: 042
  3. DUO-NEB [Concomitant]
     Indication: Product used for unknown indication
     Route: 065
  4. TRILEPTAL [Concomitant]
     Active Substance: OXCARBAZEPINE
     Indication: Product used for unknown indication
     Route: 065
  5. MINIPRESS [Concomitant]
     Active Substance: PRAZOSIN HYDROCHLORIDE
     Indication: Product used for unknown indication
     Route: 065
  6. ALBUTEROL SULFATE [Concomitant]
     Active Substance: ALBUTEROL SULFATE
     Indication: Product used for unknown indication
     Route: 065
  7. VITAMIN D + B12 [Concomitant]
     Indication: Product used for unknown indication
     Route: 065

REACTIONS (2)
  - Gun shot wound [Unknown]
  - Injury [Unknown]

NARRATIVE: CASE EVENT DATE: 20220304
